FAERS Safety Report 7889801-5 (Version None)
Quarter: 2011Q4

REPORT INFORMATION
  Report Type: 
  Country: None (occurrence: None)
  Receive Date: 20111103
  Receipt Date: 20111024
  Transmission Date: 20120403
  Serious: Yes (Hospitalization)
  Sender: FDA-Public Use
  Company Number: US-GLAXOSMITHKLINE-A0899755A

PATIENT
  Age: 62 Year
  Sex: Male
  Weight: 99.8 kg

DRUGS (1)
  1. AVANDAMET [Suspect]
     Indication: DIABETES MELLITUS
     Route: 048
     Dates: start: 20040501, end: 20051101

REACTIONS (2)
  - CEREBROVASCULAR ACCIDENT [None]
  - CORONARY ARTERY DISEASE [None]
